FAERS Safety Report 17883229 (Version 2)
Quarter: 2020Q2

REPORT INFORMATION
  Report Type: Spontaneous
  Country: US (occurrence: US)
  Receive Date: 20200611
  Receipt Date: 20200623
  Transmission Date: 20200714
  Serious: No
  Sender: FDA-Public Use
  Company Number: US-TEVA-2020-US-1241077

PATIENT
  Age: 66 Year
  Sex: Female

DRUGS (4)
  1. PROSZAC [Concomitant]
  2. AJOVY [Suspect]
     Active Substance: FREMANEZUMAB-VFRM
     Dosage: 225MG
     Route: 065
     Dates: start: 201911
  3. MAXALT [Concomitant]
     Active Substance: RIZATRIPTAN BENZOATE
  4. WELLBUTRIN [Concomitant]
     Active Substance: BUPROPION HYDROCHLORIDE

REACTIONS (4)
  - Inflammatory marker increased [Unknown]
  - Blood immunoglobulin A increased [Unknown]
  - Light chain analysis increased [Unknown]
  - Inflammation [Unknown]
